FAERS Safety Report 7713912-8 (Version None)
Quarter: 2011Q3

REPORT INFORMATION
  Report Type: 
  Country: None (occurrence: None)
  Receive Date: 20110826
  Receipt Date: 20110822
  Transmission Date: 20111222
  Serious: Yes (Life-Threatening)
  Sender: FDA-Public Use
  Company Number: ES-ASTRAZENECA-2011SE50154

PATIENT
  Age: 32 Year
  Sex: Female

DRUGS (2)
  1. FENTANYL [Suspect]
     Route: 042
  2. PROPOFOL [Suspect]
     Route: 040

REACTIONS (3)
  - RESPIRATORY FAILURE [None]
  - CARDIAC FAILURE [None]
  - CARDIOGENIC SHOCK [None]
